FAERS Safety Report 8581444-3 (Version None)
Quarter: 2012Q3

REPORT INFORMATION
  Report Type: 
  Country: None (occurrence: None)
  Receive Date: 20120809
  Receipt Date: 20120806
  Transmission Date: 20120928
  Serious: No
  Sender: FDA-Public Use
  Company Number: US-B.I. PHARMACEUTICALS,INC./RIDGEFIELD-2012-BP-17652BP

PATIENT
  Sex: Male

DRUGS (12)
  1. SPIRIVA [Suspect]
     Route: 048
     Dates: start: 20120806, end: 20120806
  2. MULTI-VITAMIN [Concomitant]
     Indication: SUPPLEMENTATION THERAPY
  3. SIMVASTATIN [Concomitant]
     Indication: BLOOD CHOLESTEROL INCREASED
     Dosage: 40 MG
     Route: 048
  4. SPIRIVA [Suspect]
     Indication: PNEUMOTHORAX
     Dosage: 18 MCG
     Route: 055
     Dates: start: 20110801
  5. THEOPHYLLINE [Concomitant]
     Indication: DYSPNOEA
     Dosage: 400 MG
     Route: 048
     Dates: start: 20110801
  6. BUSPIRONE HCL [Concomitant]
     Indication: ANXIETY
     Dosage: 60 MG
     Route: 048
  7. VITAMIN B1 TAB [Concomitant]
     Indication: SUPPLEMENTATION THERAPY
  8. ALBUTEROL SULFATE AUTOHALER [Concomitant]
     Indication: PNEUMOTHORAX
     Route: 055
  9. ASMANEX TWISTHALER [Concomitant]
     Indication: LUNG DISORDER
     Route: 055
  10. FORMOTEROL INHALER [Concomitant]
     Indication: LUNG DISORDER
     Dosage: 24 MCG
  11. GABAPENTIN [Concomitant]
     Indication: TREMOR
     Dosage: 600 MG
     Route: 048
  12. OMEPRAZOLE [Concomitant]
     Indication: ABDOMINAL DISCOMFORT
     Dosage: 40 MG
     Route: 048

REACTIONS (2)
  - INCORRECT ROUTE OF DRUG ADMINISTRATION [None]
  - CONDITION AGGRAVATED [None]
